FAERS Safety Report 9463629 (Version 2)
Quarter: 2013Q3

REPORT INFORMATION
  Report Type: Report from Study
  Country: AR (occurrence: AR)
  Receive Date: 20130819
  Receipt Date: 20130830
  Transmission Date: 20140515
  Serious: Yes (Death, Life-Threatening)
  Sender: FDA-Public Use
  Company Number: AR-ROCHE-1261359

PATIENT
  Age: 46 Year
  Sex: Female
  Weight: 60 kg

DRUGS (8)
  1. TRASTUZUMAB EMTANSINE [Suspect]
     Indication: BREAST CANCER METASTATIC
     Dosage: 200MG ON CYCLE 1.
     Route: 042
     Dates: start: 20130626, end: 20130808
  2. TRAMADOL [Concomitant]
     Dosage: 3 PER DAY
     Route: 048
     Dates: start: 20130201
  3. TRAMADOL [Concomitant]
     Route: 042
  4. METOCLOPRAMIDE [Concomitant]
     Dosage: 3 DOSES PER DAY
     Route: 048
     Dates: start: 20130201
  5. NAPROXEN [Concomitant]
     Dosage: 3 PER DAY
     Route: 048
     Dates: start: 20130201
  6. PREGABALIN [Concomitant]
     Dosage: 2 PER DAY
     Route: 048
     Dates: start: 20130601
  7. RELIVERAN [Concomitant]
     Route: 042
  8. OMEPRAZOLE [Concomitant]
     Route: 048
     Dates: start: 20130201

REACTIONS (4)
  - Metastases to liver [Fatal]
  - Disease progression [Fatal]
  - Multi-organ failure [Fatal]
  - Hepatic enzyme increased [Not Recovered/Not Resolved]
